FAERS Safety Report 16914027 (Version 3)
Quarter: 2019Q4

REPORT INFORMATION
  Report Type: Spontaneous
  Country: US (occurrence: US)
  Receive Date: 20191014
  Receipt Date: 20191202
  Transmission Date: 20200122
  Serious: No
  Sender: FDA-Public Use
  Company Number: US-PFIZER INC-2019437898

PATIENT
  Age: 66 Year
  Sex: Female
  Weight: 67.75 kg

DRUGS (1)
  1. HALCION [Suspect]
     Active Substance: TRIAZOLAM
     Indication: SLEEP DISORDER
     Dosage: 0.5 DF, AS NEEDED
     Route: 048
     Dates: start: 20190710

REACTIONS (1)
  - Weight decreased [Unknown]
